FAERS Safety Report 7092025-5 (Version None)
Quarter: 2010Q4

REPORT INFORMATION
  Report Type: 
  Country: None (occurrence: None)
  Receive Date: 20101109
  Receipt Date: 20081002
  Transmission Date: 20110411
  Serious: No
  Sender: FDA-Public Use
  Company Number: US-KINGPHARMUSA00001-K200801158

PATIENT
  Sex: Female
  Weight: 72.562 kg

DRUGS (4)
  1. SKELAXIN [Suspect]
     Indication: MUSCLE SPASMS
     Dosage: 800 MG, BID, PRN
     Route: 048
     Dates: start: 20080901, end: 20080927
  2. SKELAXIN [Suspect]
     Indication: MUSCLE STRAIN
  3. THYROID MEDICATION [Concomitant]
     Indication: THYROID DISORDER
  4. LIDODERM [Concomitant]
     Indication: PAIN
     Dosage: UNK, UNK
     Route: 061

REACTIONS (2)
  - DYSURIA [None]
  - MICTURITION DISORDER [None]
